FAERS Safety Report 18620754 (Version 1)
Quarter: 2020Q4

REPORT INFORMATION
  Report Type: Spontaneous
  Country: US (occurrence: US)
  Receive Date: 20201216
  Receipt Date: 20201216
  Transmission Date: 20210114
  Serious: Yes (Hospitalization, Other)
  Sender: FDA-Public Use
  Company Number: US-009507513-2012USA005919

PATIENT
  Age: 65 Year
  Sex: Female

DRUGS (10)
  1. EVISTA [Concomitant]
     Active Substance: RALOXIFENE HYDROCHLORIDE
     Indication: OSTEOPOROSIS
     Dosage: 60 MILLIGRAM
     Route: 065
     Dates: start: 2013
  2. FISH OIL [Concomitant]
     Active Substance: FISH OIL
     Dosage: UNK
  3. ASCORBIC ACID. [Concomitant]
     Active Substance: ASCORBIC ACID
     Dosage: UNK
  4. FOSAMAX [Suspect]
     Active Substance: ALENDRONATE SODIUM
     Dosage: UNK
     Route: 048
     Dates: start: 1997, end: 2008
  5. FOSAMAX [Suspect]
     Active Substance: ALENDRONATE SODIUM
     Indication: OSTEOPOROSIS
     Dosage: 70 MILLIGRAM
     Route: 065
     Dates: start: 20090906
  6. FOSAMAX [Suspect]
     Active Substance: ALENDRONATE SODIUM
     Indication: OSTEOPOROSIS
     Dosage: 5 MILLIGRAM
     Route: 048
     Dates: start: 1996, end: 2006
  7. BONIVA [Suspect]
     Active Substance: IBANDRONATE SODIUM
     Indication: OSTEOPOROSIS
     Dosage: 150 MILLIGRAM
     Route: 048
     Dates: start: 2006, end: 2008
  8. BONIVA [Suspect]
     Active Substance: IBANDRONATE SODIUM
     Dosage: 150 MILLIGRAM
     Route: 048
     Dates: start: 2008, end: 2013
  9. VITAMIN E [Concomitant]
     Active Substance: .ALPHA.-TOCOPHEROL
     Dosage: UNK
  10. CYANOCOBALAMIN. [Concomitant]
     Active Substance: CYANOCOBALAMIN
     Dosage: UNK

REACTIONS (4)
  - Atypical femur fracture [Unknown]
  - Emotional distress [Unknown]
  - Low turnover osteopathy [Unknown]
  - Anxiety [Unknown]

NARRATIVE: CASE EVENT DATE: 20130811
